FAERS Safety Report 16760680 (Version 1)
Quarter: 2019Q3

REPORT INFORMATION
  Report Type: Spontaneous
  Country: US (occurrence: US)
  Receive Date: 20190830
  Receipt Date: 20190830
  Transmission Date: 20191005
  Serious: No
  Sender: FDA-Public Use
  Company Number: US-BAUSCH-BL-2019-023243

PATIENT
  Age: 76 Year
  Sex: Female
  Weight: 72.64 kg

DRUGS (3)
  1. LOTEMAX [Suspect]
     Active Substance: LOTEPREDNOL ETABONATE
     Indication: EYE INFLAMMATION
     Dosage: ONE DROP IN BOTH EYES ONCE NIGHTLY, START DATE: APPROXIMATELY ONE WEEK AGO
     Route: 047
     Dates: start: 2019, end: 2019
  2. ARMOUR THYROID [Concomitant]
     Active Substance: THYROID, PORCINE
     Indication: PRODUCT USED FOR UNKNOWN INDICATION
  3. LOTEMAX [Suspect]
     Active Substance: LOTEPREDNOL ETABONATE
     Indication: PRODUCT USE IN UNAPPROVED INDICATION

REACTIONS (4)
  - Product residue present [Unknown]
  - Ocular hyperaemia [Recovering/Resolving]
  - Product use in unapproved indication [Unknown]
  - Eye pain [Recovering/Resolving]

NARRATIVE: CASE EVENT DATE: 2019
